FAERS Safety Report 8347060-3 (Version None)
Quarter: 2012Q2

REPORT INFORMATION
  Report Type: 
  Country: None (occurrence: None)
  Receive Date: 20120509
  Receipt Date: 20120503
  Transmission Date: 20120825
  Serious: No
  Sender: FDA-Public Use
  Company Number: US-PFIZER INC-2012109361

PATIENT
  Sex: Female
  Weight: 72.562 kg

DRUGS (8)
  1. SIMVASTATIN [Suspect]
     Indication: BLOOD CHOLESTEROL INCREASED
     Dosage: 20 MG, 1X/DAY
     Dates: start: 20090429, end: 20110601
  2. AMLODIPINE [Concomitant]
     Indication: HYPERTENSION
     Dosage: UNK
  3. ACIPHEX [Concomitant]
     Indication: INFLAMMATION
     Dosage: UNK
  4. PLAVIX [Concomitant]
     Indication: CARDIAC DISORDER
     Dosage: UNK
  5. ATORVASTATIN CALCIUM [Suspect]
     Indication: BLOOD CHOLESTEROL INCREASED
     Dosage: UNK
     Dates: start: 20120322, end: 20120330
  6. PINDOLOL [Concomitant]
     Indication: CARDIAC DISORDER
     Dosage: UNK
  7. LORAZEPAM [Concomitant]
     Indication: ANXIETY
     Dosage: UNK, AS NEEDED
  8. SIMVASTATIN [Suspect]
     Dosage: 20 MG, 1X/DAY
     Dates: start: 20111101

REACTIONS (2)
  - ADVERSE REACTION [None]
  - INSOMNIA [None]
